FAERS Safety Report 18884128 (Version 1)
Quarter: 2021Q1

REPORT INFORMATION
  Report Type: Spontaneous
  Country: JP (occurrence: JP)
  Receive Date: 20210212
  Receipt Date: 20210212
  Transmission Date: 20210420
  Serious: Yes (Hospitalization)
  Sender: FDA-Public Use
  Company Number: JP-TAKEDA-2021TJP002644

PATIENT
  Age: 85 Year
  Sex: Female
  Weight: 60 kg

DRUGS (9)
  1. LOXOPROFEN SODIUM DIHYDRATE [Concomitant]
     Active Substance: LOXOPROFEN SODIUM DIHYDRATE
     Dosage: DOSAGE IS UNKNOWN
     Route: 050
  2. CONIEL [Concomitant]
     Active Substance: BENIDIPINE HYDROCHLORIDE
     Dosage: DOSAGE IS UNKNOWN
     Route: 050
  3. ACTOS [Suspect]
     Active Substance: PIOGLITAZONE HYDROCHLORIDE
     Indication: TYPE 2 DIABETES MELLITUS
     Dosage: 7.5 MILLIGRAM, QD
     Route: 048
     Dates: start: 20161012, end: 20210119
  4. LIPITOR [Concomitant]
     Active Substance: ATORVASTATIN CALCIUM
     Dosage: DOSAGE IS UNKNOWN
     Route: 050
  5. TAKELDA [Concomitant]
     Active Substance: ASPIRIN\LANSOPRAZOLE
     Dosage: DOSAGE IS UNKNOWN
     Route: 048
  6. REBAMIPIDE [Concomitant]
     Active Substance: REBAMIPIDE
     Dosage: DOSAGE IS UNKNOWN
     Route: 050
  7. KETOPROFEN. [Concomitant]
     Active Substance: KETOPROFEN
     Dosage: DOSAGE IS UNKNOWN
     Route: 050
  8. BASEN [VOGLIBOSE] [Concomitant]
     Active Substance: VOGLIBOSE
     Dosage: DOSAGE IS UNKNOWN
     Route: 050
  9. BROTIZOLAM [Concomitant]
     Active Substance: BROTIZOLAM
     Dosage: DOSAGE IS UNKNOWN
     Route: 050

REACTIONS (2)
  - Generalised oedema [Recovered/Resolved]
  - Gait disturbance [Unknown]

NARRATIVE: CASE EVENT DATE: 20210106
